FAERS Safety Report 5678218-X (Version None)
Quarter: 2008Q1

REPORT INFORMATION
  Report Type: 
  Country: None (occurrence: None)
  Receive Date: 20080324
  Receipt Date: 20080324
  Transmission Date: 20080703
  Serious: Yes (Death)
  Sender: FDA-Public Use
  Company Number: None

PATIENT
  Age: 65 Year
  Sex: Male

DRUGS (2)
  1. PLAVIX [Suspect]
     Dosage: 75 MG DAILY  PO
     Route: 048
  2. ASPIRIN [Suspect]
     Dosage: 325 MG DAILY PO
     Route: 048

REACTIONS (4)
  - BLOOD URINE PRESENT [None]
  - HAEMORRHAGE [None]
  - ISCHAEMIC STROKE [None]
  - NEUROLOGICAL SYMPTOM [None]
